FAERS Safety Report 6273267-5 (Version None)
Quarter: 2009Q3

REPORT INFORMATION
  Report Type: 
  Country: None (occurrence: None)
  Receive Date: 20090720
  Receipt Date: 20090709
  Transmission Date: 20100115
  Serious: Yes (Death, Hospitalization, Other)
  Sender: FDA-Public Use
  Company Number: IL-BAYER-200919850GPV

PATIENT
  Age: 72 Year
  Sex: Male

DRUGS (6)
  1. MABCAMPATH [Suspect]
     Indication: CHRONIC LYMPHOCYTIC LEUKAEMIA
     Dosage: DOSE ESCALATION
     Route: 065
     Dates: start: 20090202, end: 20090202
  2. MABCAMPATH [Suspect]
     Dosage: DOSE ESCALATION
     Route: 065
     Dates: start: 20090203, end: 20090204
  3. MABCAMPATH [Suspect]
     Dosage: DOSE ESCALATION
     Route: 065
     Dates: start: 20090201, end: 20090201
  4. FLUDARA [Suspect]
     Indication: CHRONIC LYMPHOCYTIC LEUKAEMIA
     Route: 065
  5. LEUKERAN [Concomitant]
     Indication: CHRONIC LYMPHOCYTIC LEUKAEMIA
     Route: 065
  6. CYTOXAN [Concomitant]
     Indication: CHRONIC LYMPHOCYTIC LEUKAEMIA

REACTIONS (4)
  - CYTOMEGALOVIRUS INFECTION [None]
  - HEPATIC NECROSIS [None]
  - LEUKOPENIA [None]
  - PYREXIA [None]
